FAERS Safety Report 14276182 (Version 1)
Quarter: 2017Q4

REPORT INFORMATION
  Report Type: Spontaneous
  Country: US (occurrence: US)
  Receive Date: 20171212
  Receipt Date: 20171212
  Transmission Date: 20180321
  Serious: No
  Sender: FDA-Public Use
  Company Number: US-VISTAPHARM, INC.-VER201707-000223

PATIENT
  Sex: Male

DRUGS (22)
  1. LIBRAX [Concomitant]
     Active Substance: CHLORDIAZEPOXIDE HYDROCHLORIDE\CLIDINIUM BROMIDE
  2. CABERGOLINE. [Concomitant]
     Active Substance: CABERGOLINE
     Dosage: 1.6 MG WEEKLY
     Route: 048
  3. ZOFRAN [Concomitant]
     Active Substance: ONDANSETRON HYDROCHLORIDE
  4. DESIPRAMINE [Concomitant]
     Active Substance: DESIPRAMINE
  5. SIMETHICONE (DIMETHICONE) [Concomitant]
     Active Substance: DIMETHICONE
     Indication: ABDOMINAL DISTENSION
  6. LEVSIN [Concomitant]
     Active Substance: HYOSCYAMINE SULFATE
  7. BENADRYL [Concomitant]
     Active Substance: DIPHENHYDRAMINE HYDROCHLORIDE
     Indication: ABDOMINAL DISCOMFORT
     Dosage: 60 MG QID
     Route: 048
  8. ATIVAN [Concomitant]
     Active Substance: LORAZEPAM
     Dosage: 1.5 MG DAILY
     Route: 048
  9. AMBLEN [Concomitant]
     Dosage: PRN
     Route: 048
  10. DEXILANT [Concomitant]
     Active Substance: DEXLANSOPRAZOLE
     Route: 048
  11. ASACOL [Concomitant]
     Active Substance: MESALAMINE
  12. ANDROGEL [Concomitant]
     Active Substance: TESTOSTERONE
     Indication: HORMONE REPLACEMENT THERAPY
     Dosage: TRANSDERMAL GEL
     Route: 062
  13. LEVOXYL [Concomitant]
     Active Substance: LEVOTHYROXINE SODIUM
     Indication: HORMONE REPLACEMENT THERAPY
     Dosage: 75 MCG DAILY
  14. BUDESONIDE. [Concomitant]
     Active Substance: BUDESONIDE
  15. NORDITROPIN [Concomitant]
     Active Substance: SOMATROPIN
     Indication: BLOOD GROWTH HORMONE
     Route: 058
  16. PAXIL-CR CON [Concomitant]
     Dosage: 25 MG DAILY
     Route: 048
  17. XIFAXAN [Concomitant]
     Active Substance: RIFAXIMIN
     Dosage: 550 MG QID
     Route: 048
  18. SIMETHICONE (DIMETHICONE) [Concomitant]
     Active Substance: DIMETHICONE
     Indication: FLATULENCE
  19. REGLAN [Concomitant]
     Active Substance: METOCLOPRAMIDE HYDROCHLORIDE
  20. PREDNISONE. [Concomitant]
     Active Substance: PREDNISONE
     Indication: HORMONE REPLACEMENT THERAPY
     Dosage: 10-15 MG DAILY
     Route: 048
  21. METHADONE [Suspect]
     Active Substance: METHADONE HYDROCHLORIDE
  22. LINZESS [Concomitant]
     Active Substance: LINACLOTIDE

REACTIONS (2)
  - Nausea [Unknown]
  - Abdominal pain lower [Unknown]
